FAERS Safety Report 10880713 (Version 3)
Quarter: 2015Q1

REPORT INFORMATION
  Report Type: Spontaneous
  Country: BG (occurrence: None)
  Receive Date: 20150225
  Receipt Date: 20150317
  Transmission Date: 20150721
  Serious: Yes (Death, Hospitalization)
  Sender: FDA-Public Use
  Company Number: KAD201502-000348

PATIENT
  Age: 63 Year
  Sex: Male
  Weight: 95 kg

DRUGS (7)
  1. RIBAVIRIN (RIBAVIRIN) [Suspect]
     Active Substance: RIBAVIRIN
     Indication: HEPATITIS C
     Route: 048
     Dates: start: 20150105, end: 20150205
  2. ABT-333 (DASABUVIR) [Suspect]
     Active Substance: DASABUVIR
     Indication: HEPATITIS C
     Dosage: 500 MG DAILY
     Dates: start: 20150105, end: 20150205
  3. FURANTHRIL (FUROSEMIDE) (FUROSEMIDE) [Concomitant]
  4. SPIRONOLACTON (SPIRONOLACTONE) (SPIRONOLACTONE) [Concomitant]
  5. ABT-450/RITONAVIR/ABT-267 (OMBITASVIR, PARITAPREVIR, RITONAVIR) [Suspect]
     Active Substance: OMBITASVIR\PARITAPREVIR\RITONAVIR
     Indication: HEPATITIS C
     Dosage: 2 TABLETS
     Route: 048
     Dates: start: 20150105, end: 20150205
  6. TRANSMETIL (ADEMETIONINE 4-BUTANEDISULFONATE) (ADEMETIONINE 4-BUTANEDISULFONATE) [Concomitant]
  7. NEXIUM (ESOMEPRAZOLE MAGNESIUM) (ESOMEPRAZOLE MAGNESIUM) [Concomitant]

REACTIONS (4)
  - Therapy cessation [None]
  - Hepatic steatosis [None]
  - Varices oesophageal [None]
  - Hyperbilirubinaemia [None]
